FAERS Safety Report 18145148 (Version 3)
Quarter: 2021Q1

REPORT INFORMATION
  Report Type: Spontaneous
  Country: US (occurrence: US)
  Receive Date: 20200813
  Receipt Date: 20210331
  Transmission Date: 20210419
  Serious: No
  Sender: FDA-Public Use
  Company Number: US-PFIZER INC-2020306636

PATIENT
  Age: 63 Year
  Sex: Female

DRUGS (1)
  1. XELJANZ XR [Suspect]
     Active Substance: TOFACITINIB CITRATE
     Dosage: 11 MG, DAILY (CONTINUE XELJANZ 11 MG EXTENDED RELEASE DAILY)
     Dates: start: 202008

REACTIONS (3)
  - Joint swelling [Unknown]
  - Musculoskeletal stiffness [Unknown]
  - Condition aggravated [Not Recovered/Not Resolved]
